FAERS Safety Report 8007237-3 (Version None)
Quarter: 2011Q4

REPORT INFORMATION
  Report Type: 
  Country: None (occurrence: None)
  Receive Date: 20111227
  Receipt Date: 20111215
  Transmission Date: 20120403
  Serious: Yes (Other)
  Sender: FDA-Public Use
  Company Number: ES-UCBSA-047803

PATIENT
  Age: 6 Year
  Sex: Female

DRUGS (1)
  1. KEPPRA [Suspect]
     Indication: EPILEPSY
     Dosage: 100MG/ML, 300 ML BOTTLE
     Route: 048
     Dates: start: 20090917, end: 20100625

REACTIONS (1)
  - AUTISM [None]
